FAERS Safety Report 25426936 (Version 3)
Quarter: 2025Q3

REPORT INFORMATION
  Report Type: Spontaneous
  Country: EU (occurrence: EU)
  Receive Date: 20250612
  Receipt Date: 20250710
  Transmission Date: 20251021
  Serious: Yes (Life-Threatening, Hospitalization, Disabling, Other)
  Sender: AUROBINDO
  Company Number: EU-AUROBINDO-AUR-APL-2025-029864

PATIENT
  Sex: Male

DRUGS (4)
  1. OLANZAPINE [Interacting]
     Active Substance: OLANZAPINE
     Indication: Psychotic disorder
     Route: 065
  2. COCAINE [Interacting]
     Active Substance: COCAINE
     Indication: Product used for unknown indication
     Route: 065
  3. OXYCODONE [Interacting]
     Active Substance: OXYCODONE
     Indication: Product used for unknown indication
     Route: 065
  4. ALCOHOL [Interacting]
     Active Substance: ALCOHOL
     Indication: Product used for unknown indication
     Route: 065

REACTIONS (23)
  - Myelopathy [Recovering/Resolving]
  - Rhabdomyolysis [Recovering/Resolving]
  - Pneumonia [Unknown]
  - Neurogenic bladder [Unknown]
  - Spinal cord injury [Unknown]
  - Drug abuse [Unknown]
  - Secretion discharge [Unknown]
  - Respiration abnormal [Recovering/Resolving]
  - Haemodynamic instability [Unknown]
  - Blood pressure fluctuation [Recovering/Resolving]
  - Gastrointestinal motility disorder [Unknown]
  - Poisoning deliberate [Unknown]
  - Labelled drug-food interaction issue [Unknown]
  - Depressed level of consciousness [Recovering/Resolving]
  - Labelled drug-drug interaction issue [Unknown]
  - Toxicity to various agents [Recovering/Resolving]
  - Abnormal behaviour [Unknown]
  - Muscular weakness [Unknown]
  - Areflexia [Unknown]
  - Respiratory disorder [Unknown]
  - Miosis [Unknown]
  - Oxygen saturation abnormal [Unknown]
  - Neck pain [Recovered/Resolved]
